FAERS Safety Report 13288848 (Version 1)
Quarter: 2017Q1

REPORT INFORMATION
  Report Type: Report from Study
  Country: US (occurrence: US)
  Receive Date: 20170302
  Receipt Date: 20170302
  Transmission Date: 20170428
  Serious: Yes (Other)
  Sender: FDA-Public Use
  Company Number: US-JAZZ-2017-US-001213

PATIENT
  Sex: Female

DRUGS (22)
  1. ZOMIG [Concomitant]
     Active Substance: ZOLMITRIPTAN
  2. NUVIGIL [Concomitant]
     Active Substance: ARMODAFINIL
  3. ROZEREM [Concomitant]
     Active Substance: RAMELTEON
  4. XYREM [Suspect]
     Active Substance: SODIUM OXYBATE
     Indication: CATAPLEXY
     Dosage: DOSE ADJUSTMENT
     Route: 048
     Dates: start: 2014, end: 2014
  5. XYREM [Suspect]
     Active Substance: SODIUM OXYBATE
     Dosage: 4.5 G, BID
     Route: 048
     Dates: start: 2014
  6. ONDANSETRON [Concomitant]
     Active Substance: ONDANSETRON
  7. MAXALT [Concomitant]
     Active Substance: RIZATRIPTAN BENZOATE
  8. CYMBALTA [Concomitant]
     Active Substance: DULOXETINE HYDROCHLORIDE
  9. PROMETHAZINE [Concomitant]
     Active Substance: PROMETHAZINE\PROMETHAZINE HYDROCHLORIDE
  10. XANAX [Concomitant]
     Active Substance: ALPRAZOLAM
  11. BOTOX COSMETIC [Concomitant]
     Active Substance: ONABOTULINUMTOXINA
  12. PROCHLORPERAZINE. [Concomitant]
     Active Substance: PROCHLORPERAZINE
  13. BUPRENORPHINE. [Concomitant]
     Active Substance: BUPRENORPHINE
  14. PENICILLIN VK [Concomitant]
     Active Substance: PENICILLIN V POTASSIUM
  15. CYTOMEL [Concomitant]
     Active Substance: LIOTHYRONINE SODIUM
  16. BUTALBITAL [Concomitant]
     Active Substance: BUTALBITAL
  17. TOPAMAX [Concomitant]
     Active Substance: TOPIRAMATE
  18. TRAMADOL HCL [Concomitant]
     Active Substance: TRAMADOL HYDROCHLORIDE
  19. XYREM [Suspect]
     Active Substance: SODIUM OXYBATE
     Indication: NARCOLEPSY
     Dosage: 2.25 G, BID
     Route: 048
     Dates: start: 201412, end: 2014
  20. TIZANIDINE HCL [Concomitant]
     Active Substance: TIZANIDINE HYDROCHLORIDE
  21. INDERAL [Concomitant]
     Active Substance: PROPRANOLOL HYDROCHLORIDE
  22. SYNTHROID [Concomitant]
     Active Substance: LEVOTHYROXINE SODIUM

REACTIONS (5)
  - Dental caries [Recovered/Resolved]
  - Endodontic procedure [Unknown]
  - Corneal degeneration [Not Recovered/Not Resolved]
  - Tooth extraction [Unknown]
  - Blindness [Not Recovered/Not Resolved]

NARRATIVE: CASE EVENT DATE: 2016
